FAERS Safety Report 7940503-6 (Version None)
Quarter: 2011Q4

REPORT INFORMATION
  Report Type: 
  Country: None (occurrence: None)
  Receive Date: 20111108
  Receipt Date: 20100923
  Transmission Date: 20120403
  Serious: Yes (Other)
  Sender: FDA-Public Use
  Company Number: PHHY2010US61521

PATIENT
  Age: 71 Year
  Sex: Female
  Weight: 62.8 kg

DRUGS (9)
  1. XELODA [Concomitant]
  2. AVAPRO [Concomitant]
  3. PROMETHAZINE [Concomitant]
  4. LIPITOR [Concomitant]
  5. ZOMETA [Suspect]
     Indication: METASTASES TO BREAST
     Dosage: 3.5 MG, IV INFUSION
     Route: 042
     Dates: start: 20100802
  6. DILTIAZEM [Concomitant]
  7. ZETIA [Concomitant]
  8. SPIRONOLACTONE [Concomitant]
  9. NASACORT [Concomitant]

REACTIONS (2)
  - RENAL INJURY [None]
  - BLOOD CREATININE INCREASED [None]
